FAERS Safety Report 16055342 (Version 1)
Quarter: 2019Q1

REPORT INFORMATION
  Report Type: Report from Study
  Country: ES (occurrence: ES)
  Receive Date: 20190311
  Receipt Date: 20190311
  Transmission Date: 20190418
  Serious: Yes (Other)
  Sender: FDA-Public Use
  Company Number: ES-TEVA-2019-ES-1021682

PATIENT
  Age: 71 Year
  Sex: Male

DRUGS (2)
  1. AZITROMICINA (7019A) [Suspect]
     Active Substance: AZITHROMYCIN
     Dosage: 500 MILLIGRAM DAILY; 500 MG DIA
     Route: 048
     Dates: start: 20180519, end: 20180521
  2. AMOXICILINA / ACIDO CLAVULANICO TEVA 500 MG/125 MG [Suspect]
     Active Substance: AMOXICILLIN\CLAVULANIC ACID
     Dosage: 1750 MILLIGRAM DAILY; 1-0-1
     Route: 048
     Dates: start: 20180524, end: 20180530

REACTIONS (1)
  - Hepatitis acute [Recovered/Resolved]

NARRATIVE: CASE EVENT DATE: 20180601
